FAERS Safety Report 12990268 (Version 2)
Quarter: 2017Q1

REPORT INFORMATION
  Report Type: Spontaneous
  Country: IT (occurrence: IT)
  Receive Date: 20161201
  Receipt Date: 20170126
  Transmission Date: 20170428
  Serious: Yes (Other)
  Sender: FDA-Public Use
  Company Number: IT-GLAXOSMITHKLINE-IT2016GSK176414

PATIENT
  Age: 42 Year
  Sex: Male

DRUGS (1)
  1. VOLTAREN [Suspect]
     Active Substance: DICLOFENAC SODIUM
     Indication: PRODUCT USED FOR UNKNOWN INDICATION
     Dosage: UNK

REACTIONS (6)
  - Erythema [Unknown]
  - Dysphagia [Unknown]
  - Pruritus [Unknown]
  - Odynophagia [Unknown]
  - Urticaria [Unknown]
  - Dysphonia [Unknown]

NARRATIVE: CASE EVENT DATE: 20160104
